FAERS Safety Report 9190753 (Version 3)
Quarter: 2013Q2

REPORT INFORMATION
  Report Type: Spontaneous
  Country: TR (occurrence: TR)
  Receive Date: 20130326
  Receipt Date: 20130519
  Transmission Date: 20140414
  Serious: Yes (Life-Threatening)
  Sender: FDA-Public Use
  Company Number: TR-009507513-1303TUR011931

PATIENT
  Age: 2 Year
  Sex: Female
  Weight: 14 kg

DRUGS (3)
  1. ESMERON [Suspect]
     Indication: ADENOIDECTOMY
     Dosage: TOTAL DAILY DOSE: 10MILLIGRAMS
     Route: 042
     Dates: start: 20130314, end: 20130314
  2. PROPOFOL [Concomitant]
     Indication: ADENOIDECTOMY
     Dosage: UNK
     Route: 042
     Dates: start: 20130314, end: 20130314
  3. FENTANYL [Concomitant]
     Indication: ADENOIDECTOMY
     Dosage: UNK
     Route: 042
     Dates: start: 20130314, end: 20130314

REACTIONS (6)
  - Laryngospasm [Recovered/Resolved]
  - Bronchospasm [Recovered/Resolved]
  - Cough [Unknown]
  - Retching [Unknown]
  - Drug ineffective [Unknown]
  - Oxygen saturation decreased [Unknown]
